FAERS Safety Report 10573151 (Version 1)
Quarter: 2014Q4

REPORT INFORMATION
  Report Type: Spontaneous
  Country: JP (occurrence: None)
  Receive Date: 20141106
  Receipt Date: 20141106
  Transmission Date: 20150529
  Serious: Yes (Other)
  Sender: FDA-Public Use
  Company Number: VAL_03526_2014

PATIENT

DRUGS (2)
  1. MEXILETINE [Suspect]
     Active Substance: MEXILETINE
     Indication: MATERNAL EXPOSURE TIMING UNSPECIFIED
     Dosage: DF
     Route: 064
  2. METOPROLOL (METOPROLOL - METOPROLOL TARTRATE) [Suspect]
     Active Substance: METOPROLOL
     Indication: MATERNAL EXPOSURE DURING PREGNANCY
     Dosage: [MOTHER^S DOSE: 40MG AND 60 MG]
     Route: 064

REACTIONS (4)
  - Caesarean section [None]
  - Ventricular tachycardia [None]
  - Exposure during pregnancy [None]
  - Premature labour [None]
